FAERS Safety Report 6010123-1 (Version None)
Quarter: 2008Q4

REPORT INFORMATION
  Report Type: 
  Country: None (occurrence: None)
  Receive Date: 20081218
  Receipt Date: 20081210
  Transmission Date: 20090506
  Serious: Yes (Hospitalization)
  Sender: FDA-Public Use
  Company Number: US-ASTRAZENECA-2008UW27787

PATIENT
  Age: 61 Year
  Sex: Female
  Weight: 68.9 kg

DRUGS (7)
  1. CRESTOR [Suspect]
     Indication: BLOOD CHOLESTEROL INCREASED
     Route: 048
     Dates: start: 20080101, end: 20081204
  2. LAMICTAL [Concomitant]
  3. DEPLIN [Concomitant]
  4. PRAZSOIN HCL [Concomitant]
  5. PREVACID [Concomitant]
  6. AMBIEN [Concomitant]
  7. VALIUM [Concomitant]

REACTIONS (8)
  - ABDOMINAL PAIN [None]
  - BACK PAIN [None]
  - BLADDER PAIN [None]
  - GASTROINTESTINAL OEDEMA [None]
  - GASTROINTESTINAL PAIN [None]
  - PAIN [None]
  - PELVIC PAIN [None]
  - TREMOR [None]
